FAERS Safety Report 5241619-8 (Version None)
Quarter: 2007Q1

REPORT INFORMATION
  Report Type: 
  Country: None (occurrence: None)
  Receive Date: 20070215
  Receipt Date: 20070215
  Transmission Date: 20070707
  Serious: Yes (Other)
  Sender: FDA-Public Use
  Company Number: None

PATIENT
  Age: 64 Year
  Sex: Female
  Weight: 56.7 kg

DRUGS (6)
  1. DULOXETINE [Suspect]
     Indication: DEPRESSION
     Dosage: 60 MG PO, 30 MG PO
     Route: 048
     Dates: start: 20061202, end: 20070121
  2. DULOXETINE [Suspect]
     Indication: DEPRESSION
     Dosage: 60 MG PO, 30 MG PO
     Route: 048
     Dates: start: 20070121, end: 20070122
  3. VASOTEC [Concomitant]
  4. HALDOL [Concomitant]
  5. SEROQUEL [Concomitant]
  6. RISPERDAL [Concomitant]

REACTIONS (2)
  - ALANINE AMINOTRANSFERASE INCREASED [None]
  - FAECAL INCONTINENCE [None]
